FAERS Safety Report 16322366 (Version 2)
Quarter: 2019Q2

REPORT INFORMATION
  Report Type: Spontaneous
  Country: US (occurrence: US)
  Receive Date: 20190516
  Receipt Date: 20190624
  Transmission Date: 20190711
  Serious: No
  Sender: FDA-Public Use
  Company Number: PHEH2019US020307

PATIENT
  Sex: Female

DRUGS (1)
  1. RIVASTIGMINE. [Suspect]
     Active Substance: RIVASTIGMINE
     Indication: PRODUCT USED FOR UNKNOWN INDICATION
     Dosage: 9.5 MG, Q24H
     Route: 065
     Dates: start: 201806

REACTIONS (4)
  - Urticaria [Unknown]
  - Skin exfoliation [Unknown]
  - Pruritus [Unknown]
  - Product lot number issue [Unknown]
